FAERS Safety Report 14586407 (Version 1)
Quarter: 2018Q1

REPORT INFORMATION
  Report Type: Spontaneous
  Country: US (occurrence: US)
  Receive Date: 20180301
  Receipt Date: 20180301
  Transmission Date: 20180509
  Serious: No
  Sender: FDA-Public Use
  Company Number: US-BRACCO DIAGNOSTICS, INC.-2017US04470

PATIENT
  Age: 17 Year
  Sex: Female

DRUGS (1)
  1. CHOLETEC [Suspect]
     Active Substance: TECHNETIUM TC-99M MEBROFENIN
     Indication: HEPATOBILIARY SCAN
     Dosage: 5 ML, SINGLE
     Route: 042
     Dates: start: 20170929, end: 20170929

REACTIONS (1)
  - Alopecia [Unknown]

NARRATIVE: CASE EVENT DATE: 20170929
